FAERS Safety Report 7561071-7 (Version None)
Quarter: 2011Q2

REPORT INFORMATION
  Report Type: 
  Country: None (occurrence: None)
  Receive Date: 20110621
  Receipt Date: 20110613
  Transmission Date: 20111010
  Serious: Yes (Other)
  Sender: FDA-Public Use
  Company Number: DE-UCBSA-035395

PATIENT
  Age: 30 Year
  Sex: Female
  Weight: 60 kg

DRUGS (2)
  1. OXCARBAZEPINE [Suspect]
     Dosage: 4 TABLETS=2400 MG
     Route: 048
  2. KEPPRA [Suspect]
     Dosage: 3 TABLETS=3000 MG
     Route: 048

REACTIONS (1)
  - DRUG ABUSE [None]
